FAERS Safety Report 7045701-4 (Version None)
Quarter: 2010Q4

REPORT INFORMATION
  Report Type: 
  Country: None (occurrence: None)
  Receive Date: 20101014
  Receipt Date: 20101007
  Transmission Date: 20110411
  Serious: Yes (Other)
  Sender: FDA-Public Use
  Company Number: SE-BRISTOL-MYERS SQUIBB COMPANY-15329246

PATIENT
  Age: 24 Year
  Sex: Female

DRUGS (3)
  1. ORENCIA [Suspect]
     Indication: JUVENILE ARTHRITIS
     Dosage: THERAPY DURATION OF 4 MONTHS.THERAPY STOPPED ON 28JUL10,LAST INF-28JUL10.
     Route: 042
     Dates: start: 20100324, end: 20100728
  2. METHOTREXATE [Concomitant]
     Dosage: TAB.
  3. PREDNISOLONE [Concomitant]
     Dosage: TABLET.

REACTIONS (3)
  - APATHY [None]
  - DEPRESSION [None]
  - FATIGUE [None]
